FAERS Safety Report 17359033 (Version 3)
Quarter: 2020Q2

REPORT INFORMATION
  Report Type: Report from Study
  Country: None (occurrence: US)
  Receive Date: 20200202
  Receipt Date: 20200505
  Transmission Date: 20200713
  Serious: Yes (Hospitalization, Other)
  Sender: FDA-Public Use
  Company Number: US-ABBVIE-20K-163-3259450-00

PATIENT
  Age: 48 Year
  Sex: Female
  Weight: 72.64 kg

DRUGS (2)
  1. HUMIRA [Suspect]
     Active Substance: ADALIMUMAB
     Indication: PSORIASIS
     Route: 058
     Dates: start: 2010, end: 20191129
  2. HUMIRA [Suspect]
     Active Substance: ADALIMUMAB
     Route: 058
     Dates: start: 202001

REACTIONS (8)
  - Intervertebral disc degeneration [Recovered/Resolved]
  - Herpes zoster [Recovered/Resolved]
  - Abdominal pain [Not Recovered/Not Resolved]
  - Vascular procedure complication [Unknown]
  - Intra-abdominal haemorrhage [Recovered/Resolved]
  - Psoriasis [Unknown]
  - Intervertebral disc protrusion [Recovered/Resolved]
  - Procedural pain [Not Recovered/Not Resolved]

NARRATIVE: CASE EVENT DATE: 2017
